FAERS Safety Report 7779278-2 (Version None)
Quarter: 2011Q3

REPORT INFORMATION
  Report Type: 
  Country: None (occurrence: None)
  Receive Date: 20110926
  Receipt Date: 20110915
  Transmission Date: 20111222
  Serious: Yes (Other)
  Sender: FDA-Public Use
  Company Number: US-ASTRAZENECA-2009SE24008

PATIENT
  Age: 842 Month
  Sex: Female
  Weight: 70.3 kg

DRUGS (19)
  1. SINEMET [Concomitant]
     Indication: PARKINSON'S DISEASE
  2. POTASSIUM [Concomitant]
  3. ATACAND [Suspect]
     Route: 048
     Dates: start: 20080101, end: 20091026
  4. LEVODOPA [Concomitant]
     Dosage: 100 MG 18 PILLS
  5. BOMALIN [Concomitant]
  6. CALCIUM CARBONATE [Concomitant]
  7. CELEXA [Concomitant]
  8. CLONOPIN [Concomitant]
     Indication: SLEEP DISORDER
  9. MAGNESIUM [Concomitant]
  10. CHOLEN [Concomitant]
  11. MAGNESIUM MALEATE [Concomitant]
  12. SEROQUEL [Suspect]
     Indication: SLEEP DISORDER
     Route: 048
     Dates: start: 20101201
  13. CARBIDOPA [Concomitant]
  14. VITAMIN D [Concomitant]
  15. BIOTIN [Concomitant]
  16. CALCIUM CARBONATE [Concomitant]
     Dosage: ONCE A DAY
  17. LECITHIN [Concomitant]
  18. PANCREASE [Concomitant]
  19. VITAMIN C ESTER [Concomitant]

REACTIONS (11)
  - TREMOR [None]
  - MUSCLE SPASMS [None]
  - FALL [None]
  - DYSPNOEA [None]
  - OFF LABEL USE [None]
  - URINE URIC ACID [None]
  - HYPOTENSION [None]
  - MALAISE [None]
  - WRIST FRACTURE [None]
  - FEELING HOT [None]
  - MUSCULOSKELETAL STIFFNESS [None]
